FAERS Safety Report 13835843 (Version 1)
Quarter: 2017Q3

REPORT INFORMATION
  Report Type: Spontaneous
  Country: US (occurrence: US)
  Receive Date: 20170804
  Receipt Date: 20170804
  Transmission Date: 20171127
  Serious: Yes (Hospitalization, Other)
  Sender: FDA-Public Use
  Company Number: US-SA-2017SA138735

PATIENT
  Age: 51 Year
  Sex: Female
  Weight: 95.7 kg

DRUGS (24)
  1. LORTAB [Suspect]
     Active Substance: ACETAMINOPHEN\HYDROCODONE BITARTRATE
     Route: 065
  2. BUSPIRONE [Concomitant]
     Active Substance: BUSPIRONE HYDROCHLORIDE
     Route: 065
  3. ENBREL [Suspect]
     Active Substance: ETANERCEPT
     Indication: RHEUMATOID ARTHRITIS
     Route: 065
  4. SYNTHROID [Concomitant]
     Active Substance: LEVOTHYROXINE SODIUM
     Route: 065
  5. SULFASALAZINE. [Suspect]
     Active Substance: SULFASALAZINE
     Indication: RHEUMATOID ARTHRITIS
     Route: 065
  6. HUMIRA [Suspect]
     Active Substance: ADALIMUMAB
     Indication: RHEUMATOID ARTHRITIS
     Route: 065
  7. CIMZIA [Suspect]
     Active Substance: CERTOLIZUMAB PEGOL
     Indication: ARTHRALGIA
     Dosage: 200 MG KIT 400 MG
     Route: 065
  8. ACETAMINOPHEN W/OXYCODONE [Concomitant]
     Active Substance: ACETAMINOPHEN\OXYCODONE HYDROCHLORIDE
     Route: 065
  9. LORAZEPAM. [Concomitant]
     Active Substance: LORAZEPAM
     Route: 065
  10. ARAVA [Suspect]
     Active Substance: LEFLUNOMIDE
     Indication: RHEUMATOID ARTHRITIS
     Route: 048
  11. METHOTREXATE. [Suspect]
     Active Substance: METHOTREXATE
     Indication: RHEUMATOID ARTHRITIS
     Route: 065
  12. METHOTREXATE. [Suspect]
     Active Substance: METHOTREXATE
     Indication: RHEUMATOID ARTHRITIS
     Route: 065
  13. CODEINE [Suspect]
     Active Substance: CODEINE
     Route: 065
  14. VITAMIN D3 [Concomitant]
     Active Substance: CHOLECALCIFEROL
     Route: 065
  15. EFFEXOR [Concomitant]
     Active Substance: VENLAFAXINE HYDROCHLORIDE
  16. CIMZIA [Suspect]
     Active Substance: CERTOLIZUMAB PEGOL
     Indication: SOFT TISSUE SWELLING
     Dosage: 200 MG KIT 400 MG
     Route: 065
  17. MELOXICAM. [Concomitant]
     Active Substance: MELOXICAM
  18. MECLIZINE [Concomitant]
     Active Substance: MECLIZINE HYDROCHLORIDE
     Route: 065
  19. METHOTREXATE. [Suspect]
     Active Substance: METHOTREXATE
     Indication: RHEUMATOID ARTHRITIS
     Route: 065
  20. CIMZIA [Suspect]
     Active Substance: CERTOLIZUMAB PEGOL
     Indication: RHEUMATOID ARTHRITIS
     Dosage: 200 MG KIT 400 MG
     Route: 065
  21. CALCIUM/COLECALCIFEROL [Concomitant]
     Route: 065
  22. PREDNISONE. [Concomitant]
     Active Substance: PREDNISONE
     Route: 065
  23. ESOMEPRAZOLE [Concomitant]
     Active Substance: ESOMEPRAZOLE
     Route: 065
  24. VENLAFAXINE [Concomitant]
     Active Substance: VENLAFAXINE HYDROCHLORIDE
     Route: 065

REACTIONS (10)
  - Arthralgia [Unknown]
  - Vomiting [Unknown]
  - Renal failure [Unknown]
  - Soft tissue swelling [Unknown]
  - Osteoarthritis [Unknown]
  - Synovitis [Unknown]
  - Musculoskeletal stiffness [Unknown]
  - Rectal haemorrhage [Unknown]
  - Loss of personal independence in daily activities [Unknown]
  - Nausea [Unknown]

NARRATIVE: CASE EVENT DATE: 201406
